FAERS Safety Report 4816353-6 (Version None)
Quarter: 2005Q4

REPORT INFORMATION
  Report Type: 
  Country: None (occurrence: None)
  Receive Date: 20051031
  Receipt Date: 20050907
  Transmission Date: 20060501
  Serious: Yes (Other)
  Sender: FDA-Public Use
  Company Number: JP-MERCK-0509USA01987

PATIENT
  Age: 72 Year
  Sex: Female

DRUGS (10)
  1. FOSAMAX [Suspect]
     Indication: OSTEOPOROSIS
     Route: 048
     Dates: start: 20021101, end: 20030728
  2. FOSAMAX [Suspect]
     Route: 048
     Dates: start: 20041112, end: 20050718
  3. ALFACALCIDOL [Concomitant]
     Indication: OSTEOPOROSIS
     Route: 048
     Dates: start: 20021101
  4. MANIDIPINE HYDROCHLORIDE [Concomitant]
     Indication: HYPERTENSION
     Route: 048
     Dates: start: 20040911
  5. ENALAPRIL MALEATE [Concomitant]
     Indication: HYPERTENSION
     Route: 048
     Dates: start: 20031104, end: 20040910
  6. BENET [Concomitant]
     Indication: OSTEOPOROSIS
     Route: 048
     Dates: start: 20030729, end: 20041111
  7. BROTIZOLAM [Concomitant]
     Indication: INSOMNIA
     Route: 048
     Dates: start: 20021201, end: 20040201
  8. RIOHARD [Concomitant]
     Route: 048
     Dates: start: 20021201, end: 20031103
  9. RIOHARD [Concomitant]
     Route: 048
     Dates: start: 20031104, end: 20040910
  10. ENALAPRIL MALEATE [Suspect]
     Route: 048
     Dates: start: 20040911, end: 20050718

REACTIONS (2)
  - ANAEMIA [None]
  - PANCYTOPENIA [None]
